FAERS Safety Report 23723697 (Version 1)
Quarter: 2024Q2

REPORT INFORMATION
  Report Type: Spontaneous
  Country: US (occurrence: US)
  Receive Date: 20240409
  Receipt Date: 20240409
  Transmission Date: 20240716
  Serious: Yes (Death, Other)
  Sender: FDA-Public Use
  Company Number: US-BEXIMCO-2024BEX00023

PATIENT
  Age: 43 Year
  Sex: Male

DRUGS (1)
  1. CARVEDILOL [Suspect]
     Active Substance: CARVEDILOL
     Indication: Suicide attempt
     Dosage: 400-500 MG
     Route: 048

REACTIONS (7)
  - Completed suicide [Fatal]
  - Multiple organ dysfunction syndrome [Fatal]
  - Overdose [Fatal]
  - Cardiogenic shock [Fatal]
  - Hypoxia [Unknown]
  - Hypotension [Unknown]
  - Depressed level of consciousness [Unknown]
